FAERS Safety Report 14100846 (Version 1)
Quarter: 2017Q4

REPORT INFORMATION
  Report Type: Spontaneous
  Country: US (occurrence: None)
  Receive Date: 20171017
  Receipt Date: 20171017
  Transmission Date: 20180321
  Serious: Yes (Other)
  Sender: FDA-Public Use
  Company Number: None

PATIENT
  Age: 72 Year
  Sex: Female
  Weight: 48.08 kg

DRUGS (2)
  1. LEVOTHYROXINE. [Concomitant]
     Active Substance: LEVOTHYROXINE
  2. TRANSDERM SCOP [Suspect]
     Active Substance: SCOPOLAMINE
     Indication: MOTION SICKNESS
     Route: 062

REACTIONS (4)
  - Vomiting [None]
  - Dizziness [None]
  - Headache [None]
  - Nausea [None]

NARRATIVE: CASE EVENT DATE: 20170813
